FAERS Safety Report 18503810 (Version 1)
Quarter: 2020Q4

REPORT INFORMATION
  Report Type: Report from Study
  Country: BR (occurrence: BR)
  Receive Date: 20201114
  Receipt Date: 20201114
  Transmission Date: 20210114
  Serious: Yes (Other)
  Sender: FDA-Public Use
  Company Number: BR-TAKEDA-BR201930918

PATIENT

DRUGS (10)
  1. HEMO-8R [Suspect]
     Active Substance: ANTIHEMOPHILIC FACTOR, HUMAN RECOMBINANT
     Dosage: 2000 INTERNATIONAL UNIT, 3X A WEEK (MONDAY, WEDNESDAY AND FRIDAY)
     Route: 042
     Dates: start: 20190423
  2. HEMO-8R [Suspect]
     Active Substance: ANTIHEMOPHILIC FACTOR, HUMAN RECOMBINANT
     Dosage: 2000 INTERNATIONAL UNIT, 3X A WEEK (MONDAY, WEDNESDAY AND FRIDAY)
     Route: 042
     Dates: start: 20200203
  3. IBUPROFEN. [Concomitant]
     Active Substance: IBUPROFEN
     Indication: HAEMORRHAGE
     Dosage: 600 MILLIGRAM
     Route: 065
  4. HEMO-8R [Suspect]
     Active Substance: ANTIHEMOPHILIC FACTOR, HUMAN RECOMBINANT
     Indication: FACTOR VIII DEFICIENCY
     Dosage: 1500 INTERNATIONAL UNIT, 3X A WEEK (MONDAY, WEDNESDAY AND FRIDAY)
     Route: 042
  5. ADVATE [Suspect]
     Active Substance: ANTIHEMOPHILIC FACTOR, HUMAN RECOMBINANT
     Indication: FACTOR VIII DEFICIENCY
     Dosage: 2000 INTERNATIONAL UNIT,ALTERNATE DAYS
     Route: 042
     Dates: start: 20190423
  6. ADVATE [Suspect]
     Active Substance: ANTIHEMOPHILIC FACTOR, HUMAN RECOMBINANT
     Indication: FACTOR VIII DEFICIENCY
     Dosage: 2000 INTERNATIONAL UNIT,ALTERNATE DAYS
     Route: 042
     Dates: start: 20190423
  7. IBUPROFEN. [Concomitant]
     Active Substance: IBUPROFEN
     Indication: PAIN
  8. IBUPROFEN. [Concomitant]
     Active Substance: IBUPROFEN
     Indication: SWELLING
  9. ADVATE [Suspect]
     Active Substance: ANTIHEMOPHILIC FACTOR, HUMAN RECOMBINANT
     Indication: FACTOR VIII DEFICIENCY
     Dosage: 2000 INTERNATIONAL UNIT,ALTERNATE DAYS
     Route: 042
     Dates: start: 20190423
  10. ALGINAC [Concomitant]
     Active Substance: CYANOCOBALAMIN\DICLOFENAC SODIUM\PYRIDOXINE HYDROCHLORIDE\THIAMINE MONONITRATE
     Indication: ANTIINFLAMMATORY THERAPY
     Dosage: 1000 MILLIGRAM
     Route: 065

REACTIONS (4)
  - Infusion site haemorrhage [Not Recovered/Not Resolved]
  - Prescription drug used without a prescription [Unknown]
  - Osteoarthritis [Not Recovered/Not Resolved]
  - Drug ineffective [Not Recovered/Not Resolved]
